FAERS Safety Report 17217637 (Version 14)
Quarter: 2021Q1

REPORT INFORMATION
  Report Type: Report from Study
  Country: US (occurrence: US)
  Receive Date: 20191231
  Receipt Date: 20210301
  Transmission Date: 20210419
  Serious: Yes (Death, Other)
  Sender: FDA-Public Use
  Company Number: NVSC2019US083106

PATIENT
  Sex: Female

DRUGS (3)
  1. GILENYA [Suspect]
     Active Substance: FINGOLIMOD HYDROCHLORIDE
     Dosage: 0.5 MG, QD
     Route: 048
  2. GILENYA [Suspect]
     Active Substance: FINGOLIMOD HYDROCHLORIDE
     Dosage: 0.5 MG, QD
     Route: 048
  3. GILENYA [Suspect]
     Active Substance: FINGOLIMOD HYDROCHLORIDE
     Indication: RELAPSING-REMITTING MULTIPLE SCLEROSIS
     Dosage: 0.5 MG, QD
     Route: 048
     Dates: start: 20191014

REACTIONS (33)
  - Decreased appetite [Unknown]
  - Spinal stenosis [Unknown]
  - Peripheral swelling [Unknown]
  - Tooth disorder [Unknown]
  - Dizziness [Unknown]
  - Amnesia [Unknown]
  - Metastases to liver [Unknown]
  - Musculoskeletal discomfort [Unknown]
  - Pyrexia [Unknown]
  - Stress [Unknown]
  - Cough [Unknown]
  - Abdominal distension [Unknown]
  - Oral pain [Unknown]
  - Lung neoplasm malignant [Fatal]
  - Movement disorder [Unknown]
  - Arthritis [Unknown]
  - Nasal septum perforation [Unknown]
  - Pain in extremity [Unknown]
  - Dysuria [Unknown]
  - Decubitus ulcer [Unknown]
  - Dry mouth [Unknown]
  - Bone density decreased [Unknown]
  - Rash [Unknown]
  - Dyspnoea [Unknown]
  - Tremor [Unknown]
  - Depression [Unknown]
  - Anxiety [Unknown]
  - Asthenia [Unknown]
  - Abdominal discomfort [Unknown]
  - Visual impairment [Unknown]
  - Diarrhoea [Unknown]
  - Headache [Unknown]
  - Product dose omission issue [Unknown]
